FAERS Safety Report 23804635 (Version 1)
Quarter: 2024Q2

REPORT INFORMATION
  Report Type: Report from Study
  Country: PH (occurrence: PH)
  Receive Date: 20240501
  Receipt Date: 20240501
  Transmission Date: 20240716
  Serious: Yes (Other)
  Sender: FDA-Public Use
  Company Number: PH-OTSUKA-2024_008972

PATIENT
  Sex: Female

DRUGS (7)
  1. TOLVAPTAN [Suspect]
     Active Substance: TOLVAPTAN
     Indication: Product used for unknown indication
     Dosage: 0.5 DF, TIW (15 MG HALF TABLET MWF)
     Route: 065
     Dates: start: 2022
  2. TOLVAPTAN [Suspect]
     Active Substance: TOLVAPTAN
     Dosage: 0.5 DF, (15 MG HALF TABLET TWO TO THREE TIMES A WEEK)
     Route: 065
  3. TOLVAPTAN [Suspect]
     Active Substance: TOLVAPTAN
     Dosage: 0.5 DF, TIW (15 MG HALF TABLET THREE TIMES A WEEK)
     Route: 065
  4. TOLVAPTAN [Suspect]
     Active Substance: TOLVAPTAN
     Dosage: 0.5 DF, BIW (15 MG HALF TABLET TWO TIMES A WEEK (MONDAY AND FRIDAY)
     Route: 065
  5. TOLVAPTAN [Suspect]
     Active Substance: TOLVAPTAN
     Dosage: 0.25 DF, BIW (15 MG ONE-FOURTH EVERY TUESDAY AND THURSDAY ONLY)
     Route: 065
  6. TOLVAPTAN [Suspect]
     Active Substance: TOLVAPTAN
     Dosage: 0.5 DF, TIW (15 MG HALF TABLET MWF)
     Route: 065
  7. TOLVAPTAN [Suspect]
     Active Substance: TOLVAPTAN
     Dosage: 0.25 DF, BIW (15 MG ONE-FOURTH TABLET TABLET TUESDAY AND THURSDAY)
     Route: 048
     Dates: end: 2023

REACTIONS (4)
  - Dialysis [Unknown]
  - Underdose [Unknown]
  - Wrong technique in product usage process [Unknown]
  - Inappropriate schedule of product administration [Unknown]
